FAERS Safety Report 16338974 (Version 1)
Quarter: 2019Q2

REPORT INFORMATION
  Report Type: Spontaneous
  Country: FR (occurrence: FR)
  Receive Date: 20190521
  Receipt Date: 20190521
  Transmission Date: 20190711
  Serious: Yes (Hospitalization)
  Sender: FDA-Public Use
  Company Number: PHHY2019FR112941

PATIENT
  Age: 28 Year
  Sex: Female
  Weight: 79 kg

DRUGS (1)
  1. COSENTYX [Suspect]
     Active Substance: SECUKINUMAB
     Indication: AXIAL SPONDYLOARTHRITIS
     Dosage: 1 DF, QW
     Route: 058
     Dates: start: 20190115, end: 20190212

REACTIONS (1)
  - Polyarteritis nodosa [Not Recovered/Not Resolved]

NARRATIVE: CASE EVENT DATE: 20190126
